FAERS Safety Report 14403112 (Version 1)
Quarter: 2018Q1

REPORT INFORMATION
  Report Type: Spontaneous
  Country: US (occurrence: US)
  Receive Date: 20180117
  Receipt Date: 20180117
  Transmission Date: 20180509
  Serious: No
  Sender: FDA-Public Use
  Company Number: US-MISSION PHARMACAL COMPANY-2040219

PATIENT
  Age: 48 Year
  Sex: Male

DRUGS (1)
  1. THIOLA [Suspect]
     Active Substance: TIOPRONIN
     Indication: CYSTINURIA
     Route: 065
     Dates: start: 20170121

REACTIONS (6)
  - Drug ineffective [Unknown]
  - Pain [Recovered/Resolved]
  - Malaise [Unknown]
  - Malaise [Recovered/Resolved]
  - Diarrhoea [Unknown]
  - Flatulence [Unknown]
